FAERS Safety Report 16057829 (Version 1)
Quarter: 2019Q1

REPORT INFORMATION
  Report Type: Spontaneous
  Country: DE (occurrence: DE)
  Receive Date: 20190311
  Receipt Date: 20190311
  Transmission Date: 20190418
  Serious: Yes (Other)
  Sender: FDA-Public Use
  Company Number: DE-TEVA-2019-DE-1020794

PATIENT
  Age: 27 Year
  Sex: Male
  Weight: 162 kg

DRUGS (4)
  1. HALOPERIDOL. [Concomitant]
     Active Substance: HALOPERIDOL
     Indication: SCHIZOPHRENIA
     Dosage: 2 MILLIGRAM DAILY;
     Dates: start: 20190117
  2. PANTOPRAZOL [Concomitant]
     Active Substance: PANTOPRAZOLE SODIUM
     Indication: CHRONIC GASTRITIS
     Dosage: 20 MILLIGRAM DAILY;
     Dates: start: 20181103
  3. VIGANTOLETTEN [Concomitant]
     Active Substance: CHOLECALCIFEROL
     Indication: VITAMIN D DEFICIENCY
     Dosage: 1000 IU (INTERNATIONAL UNIT) DAILY;
     Dates: start: 20190118
  4. CLOZAPIN [Suspect]
     Active Substance: CLOZAPINE
     Indication: SCHIZOPHRENIA
     Dosage: 125 MILLIGRAM DAILY;
     Dates: start: 20190117, end: 20190204

REACTIONS (2)
  - Pericarditis [Recovered/Resolved]
  - Myocarditis [Recovered/Resolved]

NARRATIVE: CASE EVENT DATE: 20190202
